FAERS Safety Report 7463404-9 (Version None)
Quarter: 2011Q2

REPORT INFORMATION
  Report Type: 
  Country: None (occurrence: None)
  Receive Date: 20110506
  Receipt Date: 20110427
  Transmission Date: 20111010
  Serious: Yes (Other)
  Sender: FDA-Public Use
  Company Number: A0926129A

PATIENT
  Sex: Male

DRUGS (1)
  1. EPZICOM [Suspect]
     Route: 065

REACTIONS (1)
  - CREATININE RENAL CLEARANCE ABNORMAL [None]
